FAERS Safety Report 5094865-0 (Version None)
Quarter: 2006Q3

REPORT INFORMATION
  Report Type: 
  Country: None (occurrence: None)
  Receive Date: 20060901
  Receipt Date: 20060509
  Transmission Date: 20061208
  Serious: Yes (Hospitalization, Other)
  Sender: FDA-Public Use
  Company Number: PHNU2006DE01944

PATIENT
  Age: 57 Year
  Sex: Male

DRUGS (7)
  1. LOCOL [Suspect]
     Indication: HYPERCHOLESTEROLAEMIA
     Dosage: 80 MG, QD
     Route: 048
     Dates: start: 20060418, end: 20060421
  2. LOCOL [Suspect]
     Dosage: 40 MG, QD
     Route: 048
     Dates: start: 20060414
  3. ASPIRIN [Concomitant]
     Indication: HYPERTENSION
     Dosage: 100 MG DAILY
     Route: 048
     Dates: start: 20060412
  4. PANTOZOL [Concomitant]
     Indication: HYPERTENSION
     Route: 048
     Dates: start: 20060412
  5. BELOC [Concomitant]
     Indication: HYPERTENSION
     Dosage: 50 MG DAILY
     Route: 048
     Dates: start: 20060412
  6. LISINOPRIL [Concomitant]
     Indication: HYPERTENSION
     Dosage: 5 MG DAILY
     Route: 048
     Dates: start: 20060412
  7. INSIDON [Concomitant]
     Indication: DYSTONIA
     Dosage: 50 MG DAILY
     Route: 048
     Dates: start: 20060412

REACTIONS (23)
  - AORTIC ELONGATION [None]
  - ARTERIAL OCCLUSIVE DISEASE [None]
  - ARTERIAL STENOSIS [None]
  - ATELECTASIS [None]
  - BLOOD ALKALINE PHOSPHATASE INCREASED [None]
  - CARDIAC HYPERTROPHY [None]
  - CAROTID ARTERY STENOSIS [None]
  - CORONARY ARTERY DISEASE [None]
  - ELECTROCARDIOGRAM REPOLARISATION ABNORMALITY [None]
  - ELECTROCARDIOGRAM T WAVE AMPLITUDE DECREASED [None]
  - ELECTROCARDIOGRAM T WAVE INVERSION [None]
  - GAMMA-GLUTAMYLTRANSFERASE INCREASED [None]
  - HEPATIC STEATOSIS [None]
  - HEPATOTOXICITY [None]
  - HYPERTENSIVE HEART DISEASE [None]
  - LIPASE INCREASED [None]
  - LIPOMATOSIS [None]
  - LIVER FUNCTION TEST ABNORMAL [None]
  - MYOCARDIAL INFARCTION [None]
  - PANCREATITIS [None]
  - STERNAL INJURY [None]
  - TRANSAMINASES INCREASED [None]
  - VENTRICULAR EXTRASYSTOLES [None]
